FAERS Safety Report 17231016 (Version 2)
Quarter: 2022Q3

REPORT INFORMATION
  Report Type: Spontaneous
  Country: GR (occurrence: GR)
  Receive Date: 20200103
  Receipt Date: 20220805
  Transmission Date: 20221026
  Serious: Yes (Other)
  Sender: FDA-Public Use
  Company Number: GR-NOVARTISPH-NVSC2019GR084745

PATIENT
  Age: 70 Year
  Sex: Female

DRUGS (11)
  1. CEFUROXIME [Suspect]
     Active Substance: CEFUROXIME
     Indication: Urinary tract infection
     Dosage: UNK
     Route: 065
  2. CIPROFLOXACIN [Suspect]
     Active Substance: CIPROFLOXACIN
     Indication: Urinary tract infection
     Dosage: 1000 MG, QD
     Route: 048
  3. AMOXICILLIN [Suspect]
     Active Substance: AMOXICILLIN
     Indication: Urinary tract infection
     Dosage: UNK
     Route: 065
  4. PITAVASTATIN [Suspect]
     Active Substance: PITAVASTATIN
     Indication: Blood cholesterol increased
     Dosage: 0.5 DOSAGE FORM, QD
     Route: 048
  5. PITAVASTATIN [Suspect]
     Active Substance: PITAVASTATIN
     Dosage: 1 MG, QD, DAILY DOSE: 1MG (HALF TABLET)
     Route: 048
  6. CRANBERRY [Suspect]
     Active Substance: CRANBERRY
     Indication: Urinary tract infection
     Dosage: 1 DOSAGE FORM, QD
     Route: 048
     Dates: end: 201908
  7. NITROFURANTOIN [Interacting]
     Active Substance: NITROFURANTOIN
     Indication: Urinary tract infection
     Dosage: 100 MG, QD
     Route: 048
     Dates: start: 201902, end: 201908
  8. LEVOTHYROXINE SODIUM [Concomitant]
     Active Substance: LEVOTHYROXINE SODIUM
     Indication: Product used for unknown indication
     Dosage: 0.1 MG
     Route: 065
  9. LOSEC [Concomitant]
     Active Substance: OMEPRAZOLE
     Indication: Product used for unknown indication
     Dosage: 3 DOSAGE FORM, QW, (1 DF, TIW)
     Route: 048
  10. HYDROCHLOROTHIAZIDE\VALSARTAN [Concomitant]
     Active Substance: HYDROCHLOROTHIAZIDE\VALSARTAN
     Indication: Product used for unknown indication
     Dosage: UNK
     Route: 048
  11. MEDITHYROX [Concomitant]
     Indication: Autoimmune thyroiditis
     Dosage: 88 UG, QD
     Route: 048

REACTIONS (5)
  - Autoimmune hepatitis [Recovering/Resolving]
  - Dry mouth [Recovered/Resolved]
  - Hepatic enzyme increased [Recovering/Resolving]
  - Drug interaction [Unknown]
  - Wrong technique in product usage process [Unknown]

NARRATIVE: CASE EVENT DATE: 20190715
